FAERS Safety Report 6884054-9 (Version None)
Quarter: 2010Q3

REPORT INFORMATION
  Report Type: 
  Country: None (occurrence: None)
  Receive Date: 20100729
  Receipt Date: 20100716
  Transmission Date: 20110219
  Serious: Yes (Other)
  Sender: FDA-Public Use
  Company Number: PHHY2010NL47125

PATIENT
  Sex: Male

DRUGS (6)
  1. ZOMETA [Suspect]
     Dosage: 4 MG/ 5ML  20 MIN.
     Route: 042
     Dates: start: 20100325
  2. ZOMETA [Suspect]
     Dosage: UNK
     Route: 042
     Dates: start: 20100422
  3. ZOMETA [Suspect]
     Dosage: UNK
     Route: 042
     Dates: start: 20100521
  4. ZOMETA [Suspect]
     Dosage: UNK
     Dates: start: 20100618
  5. ZOMETA [Suspect]
     Dosage: UNK
     Route: 042
     Dates: start: 20100716
  6. THREE BAGS OF BLOOD [Concomitant]
     Indication: FATIGUE

REACTIONS (2)
  - DYSURIA [None]
  - FATIGUE [None]
